FAERS Safety Report 9367282 (Version 2)
Quarter: 2013Q3

REPORT INFORMATION
  Report Type: Spontaneous
  Country: US (occurrence: US)
  Receive Date: 20130625
  Receipt Date: 20130926
  Transmission Date: 20140515
  Serious: Yes (Other)
  Sender: FDA-Public Use
  Company Number: US-BAYER-2013-078073

PATIENT
  Age: 60 Year
  Sex: Female

DRUGS (6)
  1. XARELTO [Suspect]
     Indication: HIP SURGERY
     Route: 048
  2. XARELTO [Suspect]
     Indication: SYSTEMIC LUPUS ERYTHEMATOSUS
  3. XARELTO [Suspect]
     Indication: THROMBOSIS PROPHYLAXIS
  4. XARELTO [Suspect]
     Indication: HYPERCOAGULATION
  5. ACETYLSALICYLIC ACID (} 100 MG) [Suspect]
     Indication: PRODUCT USED FOR UNKNOWN INDICATION
     Route: 065
  6. CELEBREX [Suspect]
     Indication: PRODUCT USED FOR UNKNOWN INDICATION
     Route: 065

REACTIONS (3)
  - Catheter site haemorrhage [Recovered/Resolved]
  - Hip arthroplasty [Unknown]
  - Off label use [Unknown]
